FAERS Safety Report 8235751-4 (Version None)
Quarter: 2012Q1

REPORT INFORMATION
  Report Type: 
  Country: None (occurrence: None)
  Receive Date: 20120326
  Receipt Date: 20120322
  Transmission Date: 20120608
  Serious: Yes (Life-Threatening)
  Sender: FDA-Public Use
  Company Number: PHHO2012IT004765

PATIENT
  Sex: Male
  Weight: 90 kg

DRUGS (4)
  1. MITOXANTRONE [Suspect]
     Indication: ACUTE MYELOID LEUKAEMIA
     Dosage: 14 MG, UNK
     Dates: start: 20120307, end: 20120311
  2. CYTARABINE [Suspect]
     Dosage: 100 MG, UNK
     Dates: start: 20120307, end: 20120313
  3. AFINITOR [Suspect]
     Indication: ACUTE MYELOID LEUKAEMIA
     Dosage: 25 MG, UNK
     Route: 048
     Dates: start: 20120307
  4. ETOPOSIDE [Suspect]
     Dosage: 200 MG, UNK
     Dates: start: 20120307, end: 20120309

REACTIONS (5)
  - FEBRILE NEUTROPENIA [None]
  - RESPIRATORY FAILURE [None]
  - COLITIS [None]
  - PNEUMONIA [None]
  - SEPSIS [None]
